FAERS Safety Report 4519619-2 (Version None)
Quarter: 2004Q4

REPORT INFORMATION
  Report Type: 
  Country: None (occurrence: None)
  Receive Date: 20041206
  Receipt Date: 20041109
  Transmission Date: 20050328
  Serious: Yes (Other)
  Sender: FDA-Public Use
  Company Number: JP-MERCK-0411USA02080

PATIENT
  Age: 57 Year
  Sex: Male
  Weight: 27 kg

DRUGS (2)
  1. PRIMAXIN [Suspect]
     Indication: PNEUMONIA
     Route: 042
     Dates: start: 20041106, end: 20041108
  2. PRODIF [Suspect]
     Indication: PNEUMONIA
     Route: 042
     Dates: start: 20041106, end: 20041108

REACTIONS (4)
  - ANAPHYLACTIC REACTION [None]
  - DRUG ERUPTION [None]
  - GENERALISED ERYTHEMA [None]
  - SKIN DESQUAMATION [None]
